FAERS Safety Report 20624920 (Version 1)
Quarter: 2022Q1

REPORT INFORMATION
  Report Type: Spontaneous
  Country: US (occurrence: US)
  Receive Date: 20220323
  Receipt Date: 20220323
  Transmission Date: 20220423
  Serious: Yes (Hospitalization, Disabling)
  Sender: FDA-Public Use
  Company Number: US-JNJFOC-20220332331

PATIENT
  Age: 64 Year
  Sex: Male

DRUGS (1)
  1. INVOKANA [Suspect]
     Active Substance: CANAGLIFLOZIN
     Indication: Product used for unknown indication
     Route: 048
     Dates: end: 20170421

REACTIONS (6)
  - Septic shock [Recovering/Resolving]
  - Staphylococcal sepsis [Recovered/Resolved]
  - Renal tubular necrosis [Recovering/Resolving]
  - Arthritis bacterial [Recovering/Resolving]
  - Acute kidney injury [Recovering/Resolving]
  - Leg amputation [Unknown]

NARRATIVE: CASE EVENT DATE: 20170401
